FAERS Safety Report 20517991 (Version 1)
Quarter: 2022Q1

REPORT INFORMATION
  Report Type: Spontaneous
  Country: US (occurrence: US)
  Receive Date: 20220225
  Receipt Date: 20220225
  Transmission Date: 20220423
  Serious: No
  Sender: FDA-Public Use
  Company Number: US-BIOGEN-2019BI00802969

PATIENT
  Sex: Female

DRUGS (2)
  1. TECFIDERA [Suspect]
     Active Substance: DIMETHYL FUMARATE
     Indication: Multiple sclerosis
     Route: 048
     Dates: start: 201708
  2. TECFIDERA [Suspect]
     Active Substance: DIMETHYL FUMARATE
     Route: 065
     Dates: start: 20170809, end: 20210201

REACTIONS (8)
  - Fatigue [Not Recovered/Not Resolved]
  - Insomnia [Unknown]
  - Foot fracture [Unknown]
  - Depression [Unknown]
  - Influenza like illness [Unknown]
  - Investigation abnormal [Unknown]
  - Anxiety disorder [Unknown]
  - Psoriatic arthropathy [Unknown]
